FAERS Safety Report 9038140 (Version 1)
Quarter: 2013Q1

REPORT INFORMATION
  Report Type: Spontaneous
  Country: US (occurrence: US)
  Receive Date: 20130129
  Receipt Date: 20130129
  Transmission Date: 20140127
  Serious: No
  Sender: FDA-Public Use
  Company Number: US-GLAXOSMITHKLINE-A0964071A

PATIENT
  Age: 66 Year
  Sex: Male
  Weight: 81.8 kg

DRUGS (12)
  1. WELLBUTRIN [Suspect]
     Indication: PRODUCT USED FOR UNKNOWN INDICATION
  2. BIOTENE [Suspect]
     Indication: PRODUCT USED FOR UNKNOWN INDICATION
  3. CHANTIX [Suspect]
     Indication: SMOKING CESSATION THERAPY
     Dosage: .5MG SEE DOSAGE TEXT
     Dates: start: 20111229
  4. DIGOXIN [Concomitant]
  5. SIMVASTATIN [Concomitant]
  6. METOPROLOL SUCCINATE [Concomitant]
  7. METHOTREXATE [Concomitant]
  8. FOLIC ACID [Concomitant]
  9. PAROXETINE HYDROCHLORIDE [Concomitant]
  10. OXYBUTYNIN [Concomitant]
  11. CALCIUM [Concomitant]
  12. VITAMIN C [Concomitant]

REACTIONS (5)
  - Abnormal dreams [Unknown]
  - Insomnia [Unknown]
  - Mouth haemorrhage [Unknown]
  - Treatment noncompliance [Unknown]
  - Drug ineffective [Unknown]
